FAERS Safety Report 6061861-6 (Version None)
Quarter: 2009Q1

REPORT INFORMATION
  Report Type: 
  Country: None (occurrence: None)
  Receive Date: 20090202
  Receipt Date: 20090123
  Transmission Date: 20090719
  Serious: Yes (Other)
  Sender: FDA-Public Use
  Company Number: US-GILEAD-2009-0019975

PATIENT
  Sex: Male

DRUGS (4)
  1. TRUVADA [Suspect]
     Indication: HEPATITIS B VIRUS TEST
     Dates: start: 20060101
  2. HEPSERA [Concomitant]
  3. INTERFERON [Concomitant]
  4. EPIVIR [Concomitant]

REACTIONS (1)
  - INCLUSION BODY MYOSITIS [None]
